FAERS Safety Report 4461550-5 (Version None)
Quarter: 2004Q3

REPORT INFORMATION
  Report Type: 
  Country: None (occurrence: None)
  Receive Date: 20040907
  Receipt Date: 20040629
  Transmission Date: 20050211
  Serious: Yes (Other)
  Sender: FDA-Public Use
  Company Number: 04-251-0161

PATIENT
  Age: 33 Year
  Sex: Male
  Weight: 108 kg

DRUGS (2)
  1. CYTARABINE [Suspect]
     Indication: ACUTE LYMPHOCYTIC LEUKAEMIA
     Dosage: 56MG, IVP, 454 MG CIV
     Route: 042
     Dates: start: 20040621, end: 20040622
  2. METHOTREXATE [Concomitant]

REACTIONS (3)
  - BLISTER [None]
  - CELLULITIS [None]
  - SKIN DISORDER [None]
